FAERS Safety Report 7343138-1 (Version None)
Quarter: 2011Q1

REPORT INFORMATION
  Report Type: 
  Country: None (occurrence: None)
  Receive Date: 20110310
  Receipt Date: 20110307
  Transmission Date: 20110831
  Serious: Yes (Other)
  Sender: FDA-Public Use
  Company Number: US-PFIZER INC-2010181796

PATIENT
  Sex: Male

DRUGS (12)
  1. NEXIUM [Concomitant]
     Indication: GASTROOESOPHAGEAL REFLUX DISEASE
     Dosage: UNK
     Dates: start: 20060101, end: 20090101
  2. LONOX [Concomitant]
     Indication: DIARRHOEA
     Dosage: UNK
     Dates: start: 20060101, end: 20090101
  3. CHANTIX [Suspect]
     Indication: SMOKING CESSATION THERAPY
     Dosage: STARTING PACK OF 0.5MG AND VARENILCINE 1MG
     Dates: start: 20071031, end: 20080201
  4. FOSAMAX [Concomitant]
     Indication: OSTEOPOROSIS
     Dosage: UNK
     Dates: start: 20060101, end: 20100101
  5. MARINOL [Concomitant]
     Indication: VOMITING
  6. FLUCONAZOLE [Concomitant]
     Indication: FUNGAL INFECTION
     Dosage: UNK
     Dates: start: 20060101, end: 20100101
  7. DEPO-TESTOSTERONE [Concomitant]
     Indication: BLOOD TESTOSTERONE DECREASED
     Dosage: UNK
     Dates: start: 20060101, end: 20090101
  8. KALETRA [Concomitant]
     Indication: HIV INFECTION
     Dosage: UNK
     Dates: start: 20060101, end: 20100101
  9. MARINOL [Concomitant]
     Indication: NAUSEA
     Dosage: UNK
     Dates: start: 20060101, end: 20090101
  10. VIREAD [Concomitant]
     Indication: HIV INFECTION
     Dosage: UNK
     Dates: start: 20060101
  11. ZIAGEN [Concomitant]
     Indication: HIV INFECTION
     Dosage: UNK
     Dates: start: 20060101
  12. CARISOPRODOL [Concomitant]
     Indication: MUSCLE RELAXANT THERAPY
     Dosage: UNK
     Dates: start: 20070101, end: 20090101

REACTIONS (2)
  - DEPRESSION [None]
  - ANXIETY [None]
